FAERS Safety Report 5834090-6 (Version None)
Quarter: 2008Q3

REPORT INFORMATION
  Report Type: 
  Country: None (occurrence: None)
  Receive Date: 20080805
  Receipt Date: 20080730
  Transmission Date: 20090109
  Serious: Yes (Hospitalization)
  Sender: FDA-Public Use
  Company Number: FR-ASTRAZENECA-2008CG01150

PATIENT
  Age: 59 Year
  Sex: Male

DRUGS (8)
  1. NEXIUM [Suspect]
     Route: 042
     Dates: end: 20080706
  2. TIENAM [Suspect]
     Route: 042
  3. PRIMPERAN TAB [Concomitant]
  4. TOBRADEX [Concomitant]
  5. VITAMIN K1 [Concomitant]
  6. NITROGLYCERIN [Concomitant]
  7. OFLOCET [Concomitant]
     Route: 042
  8. FUNGIZONE [Concomitant]
     Route: 042

REACTIONS (1)
  - CHOLESTASIS [None]
